FAERS Safety Report 7396501-7 (Version None)
Quarter: 2011Q2

REPORT INFORMATION
  Report Type: 
  Country: None (occurrence: None)
  Receive Date: 20110406
  Receipt Date: 20110328
  Transmission Date: 20111010
  Serious: Yes (Hospitalization, Other)
  Sender: FDA-Public Use
  Company Number: US-ALEXION-A201001573

PATIENT

DRUGS (20)
  1. FOLIC ACID [Concomitant]
     Dosage: 1 MG, QD
     Route: 048
     Dates: start: 20081021
  2. OXYCODONE HYDROCHLORIDE [Concomitant]
     Indication: PAIN
     Dosage: 7.5 MG, Q4-6HRS AS NEEDED
     Route: 048
     Dates: start: 20090401
  3. VITAMIN K TAB [Concomitant]
     Dosage: 100 UG, QD
  4. COUMADIN [Concomitant]
     Dosage: 10 MG, QD
  5. ATIVAN [Concomitant]
     Indication: NAUSEA
  6. TRIAMCINOLONE ACETONIDE [Concomitant]
     Dosage: UNK, AS NEEDED
     Route: 061
     Dates: start: 20100909
  7. COUMADIN [Concomitant]
     Dosage: 5 MG, QD
  8. CELEXA [Concomitant]
     Dosage: 40 MG, QD
     Route: 048
     Dates: start: 20100421
  9. SOLIRIS [Suspect]
     Dosage: 900 MG, Q2W
     Route: 042
     Dates: start: 20081203
  10. EMLA [Concomitant]
     Dosage: UNK, 1HR BEFORE PORT ACCESS
     Route: 061
     Dates: start: 20081222
  11. ZOFRAN [Concomitant]
     Indication: NAUSEA
     Dosage: 8 MG, Q8HR AS NEEDED
     Route: 048
     Dates: start: 20090413
  12. SOLIRIS [Suspect]
     Indication: PAROXYSMAL NOCTURNAL HAEMOGLOBINURIA
     Dosage: 600 MG, QW
     Route: 042
     Dates: start: 20081105, end: 20081101
  13. ALBUTEROL SULFATE [Concomitant]
     Dosage: UNK, PRN
     Route: 055
     Dates: start: 20090509
  14. FLUCONAZOLE [Concomitant]
     Dosage: 200 MG, QD
     Route: 048
     Dates: start: 20090114
  15. AVELOX [Concomitant]
     Dosage: 400 MG, QD
     Route: 048
     Dates: start: 20090325
  16. MAGNESIUM OXIDE [Concomitant]
     Dosage: 1 TAB, BID
     Route: 048
  17. COUMADIN [Concomitant]
     Dosage: 7.5 MG, QD
     Route: 048
  18. ATIVAN [Concomitant]
     Indication: ANXIETY
     Dosage: .5 MG, BID AS NEEDED
     Route: 048
     Dates: start: 20081105
  19. PROMETHAZINE HYDROCHLORIDE [Concomitant]
     Indication: NAUSEA
     Dosage: 25 MG, Q6HR AS NEEDED
     Route: 048
     Dates: start: 20090413
  20. AMBIEN [Concomitant]
     Indication: INSOMNIA
     Dosage: 5-10 MG, QHS AS NEEDED
     Route: 048
     Dates: start: 20090527

REACTIONS (13)
  - INTERNATIONAL NORMALISED RATIO DECREASED [None]
  - OROPHARYNGEAL PAIN [None]
  - CATHETER SITE PAIN [None]
  - SINUS HEADACHE [None]
  - CATHETER SITE CELLULITIS [None]
  - NON-CARDIAC CHEST PAIN [None]
  - SINUS CONGESTION [None]
  - DECREASED APPETITE [None]
  - RED MAN SYNDROME [None]
  - MALAISE [None]
  - RHINORRHOEA [None]
  - BODY TEMPERATURE INCREASED [None]
  - DIARRHOEA [None]
